FAERS Safety Report 23731025 (Version 1)
Quarter: 2024Q2

REPORT INFORMATION
  Report Type: Spontaneous
  Country: RS (occurrence: RS)
  Receive Date: 20240411
  Receipt Date: 20240411
  Transmission Date: 20240716
  Serious: Yes (Other)
  Sender: FDA-Public Use
  Company Number: RS-AMGEN-SRBSP2024069908

PATIENT
  Age: 56 Year
  Sex: Male

DRUGS (4)
  1. VECTIBIX [Suspect]
     Active Substance: PANITUMUMAB
     Indication: Intestinal adenocarcinoma
     Dosage: UNK
     Route: 065
     Dates: start: 20230926
  2. LEUCOVORIN [Concomitant]
     Active Substance: LEUCOVORIN\LEUCOVORIN CALCIUM
     Indication: Intestinal adenocarcinoma
     Dosage: UNK
     Dates: start: 20230926
  3. FLUOROURACIL [Concomitant]
     Active Substance: FLUOROURACIL
     Indication: Intestinal adenocarcinoma
     Dosage: UNK
     Dates: start: 20230926
  4. OXALIPLATIN [Concomitant]
     Active Substance: OXALIPLATIN
     Indication: Intestinal adenocarcinoma
     Dosage: UNK
     Dates: start: 20230926

REACTIONS (3)
  - Rectal cancer [Unknown]
  - Rash [Unknown]
  - Hepatic steatosis [Unknown]

NARRATIVE: CASE EVENT DATE: 20230101
